FAERS Safety Report 9490004 (Version 6)
Quarter: 2014Q1

REPORT INFORMATION
  Report Type: Report from Study
  Country: GB (occurrence: GB)
  Receive Date: 20130829
  Receipt Date: 20140321
  Transmission Date: 20141002
  Serious: Yes (Death, Hospitalization, Other)
  Sender: FDA-Public Use
  Company Number: GB-ROCHE-1187646

PATIENT
  Age: 92 Year
  Sex: Female
  Weight: 73.4 kg

DRUGS (8)
  1. RANIBIZUMAB [Suspect]
     Indication: PRODUCT USED FOR UNKNOWN INDICATION
     Dosage: DATE OF LAST DOSE PRIOR TO SAE: 13/NOV/2012
     Route: 050
     Dates: start: 20091224, end: 20130129
  2. RANIBIZUMAB [Suspect]
     Route: 050
     Dates: start: 20100819
  3. RANIBIZUMAB [Suspect]
     Route: 050
     Dates: start: 20101202
  4. RANIBIZUMAB [Suspect]
     Route: 050
     Dates: start: 20121113
  5. RANIBIZUMAB [Suspect]
     Route: 050
     Dates: start: 20130129, end: 20130715
  6. BISOPROLOL [Concomitant]
     Route: 065
     Dates: start: 1989
  7. CORACTEN [Concomitant]
     Route: 065
     Dates: start: 20110112
  8. ELTROXIN [Concomitant]
     Route: 065
     Dates: start: 2009

REACTIONS (14)
  - Death [Fatal]
  - Atrial fibrillation [Fatal]
  - Epilepsy [Fatal]
  - Transient ischaemic attack [Fatal]
  - Cerebrovascular accident [Fatal]
  - Convulsion [Recovered/Resolved with Sequelae]
  - Muscular weakness [Not Recovered/Not Resolved]
  - Malaise [Unknown]
  - Agitation [Recovered/Resolved with Sequelae]
  - Hypoxia [Unknown]
  - Unresponsive to stimuli [Recovered/Resolved]
  - Speech disorder [Recovered/Resolved with Sequelae]
  - Blood pressure increased [Recovered/Resolved with Sequelae]
  - International normalised ratio increased [Recovered/Resolved with Sequelae]
